FAERS Safety Report 19436931 (Version 1)
Quarter: 2021Q2

REPORT INFORMATION
  Report Type: Spontaneous
  Country: PL (occurrence: PL)
  Receive Date: 20210618
  Receipt Date: 20210618
  Transmission Date: 20210717
  Serious: Yes (Life-Threatening, Hospitalization, Other)
  Sender: FDA-Public Use
  Company Number: PL-SA-2021SA198400

PATIENT
  Sex: Male
  Weight: 78 kg

DRUGS (23)
  1. SODIUM CHLORIDE. [Suspect]
     Active Substance: SODIUM CHLORIDE
     Dosage: UNKNOWN
  2. TOCILIZUMAB. [Suspect]
     Active Substance: TOCILIZUMAB
     Indication: COVID-19
     Dosage: UNKNOWN
  3. FLEGAMINA [Suspect]
     Active Substance: BROMHEXINE HYDROCHLORIDE
     Dosage: UNKNOWN
  4. VITAMIN C [Concomitant]
     Active Substance: ASCORBIC ACID
     Dates: start: 2005
  5. VITAMIN D3 K2 [Concomitant]
     Dates: start: 201703
  6. METHOTREXATE [METHOTREXATE SODIUM] [Concomitant]
     Active Substance: METHOTREXATE SODIUM
     Dates: start: 2011, end: 20210506
  7. CEFTRIAXONE SODIUM. [Suspect]
     Active Substance: CEFTRIAXONE SODIUM
     Dosage: UNKNOWN
  8. CLEXANE [Suspect]
     Active Substance: ENOXAPARIN SODIUM
     Dosage: UNKNOWN
  9. OXYGEN. [Suspect]
     Active Substance: OXYGEN
     Dosage: UNKNOWN
  10. MULTIPLE ELECTROLYTES [Suspect]
     Active Substance: ELECTROLYTES NOS
     Dosage: UNKNOWN
  11. CO BESPRES [Concomitant]
     Dates: start: 20170628
  12. ACIDUM FOLICUM [Concomitant]
     Active Substance: FOLIC ACID
     Dates: start: 2011
  13. ATROXOLAM [Concomitant]
     Dates: start: 2015
  14. FILGOTINIB [Suspect]
     Active Substance: FILGOTINIB
     Indication: RHEUMATOID ARTHRITIS
     Route: 048
     Dates: start: 20180619
  15. NOLPAZA [Concomitant]
     Active Substance: PANTOPRAZOLE SODIUM
     Dates: start: 2011
  16. DEXAMETHASONE SODIUM PHOSPHATE. [Suspect]
     Active Substance: DEXAMETHASONE SODIUM PHOSPHATE
     Dosage: UNKNOWN
  17. FEBROFEN [Concomitant]
     Active Substance: KETOPROFEN
     Dates: start: 2010
  18. MAGNE B6 FORTE [Concomitant]
     Active Substance: MAGNESIUM CITRATE\PYRIDOXINE
     Dates: start: 2016
  19. VITAMIN K2 [MENAQUINONE] [Concomitant]
     Active Substance: MENAQUINONE 6
  20. BUDESONIDE. [Suspect]
     Active Substance: BUDESONIDE
     Dosage: UNKNOWN
     Route: 055
  21. FILGOTINIB [Suspect]
     Active Substance: FILGOTINIB
     Route: 048
     Dates: start: 20180619, end: 20210421
  22. LACIDOFIL [LACTOBACILLUS HELVETICUS;LACTOBACILLUS RHAMNOSUS] [Suspect]
     Active Substance: DIETARY SUPPLEMENT\PROBIOTICS
     Dosage: UNKNOWN
  23. SLOW?MAG [Concomitant]
     Active Substance: MAGNESIUM CHLORIDE
     Dates: start: 2015

REACTIONS (6)
  - Acute respiratory failure [Not Recovered/Not Resolved]
  - Pulmonary embolism [Not Recovered/Not Resolved]
  - Interstitial lung disease [Unknown]
  - COVID-19 pneumonia [Not Recovered/Not Resolved]
  - COVID-19 [Not Recovered/Not Resolved]
  - Off label use [Unknown]

NARRATIVE: CASE EVENT DATE: 20210411
